FAERS Safety Report 9772500 (Version 1)
Quarter: 2013Q4

REPORT INFORMATION
  Report Type: Spontaneous
  Country: US (occurrence: None)
  Receive Date: 20131218
  Receipt Date: 20131218
  Transmission Date: 20140711
  Serious: Yes (Other)
  Sender: FDA-Public Use
  Company Number: 2013CT000074

PATIENT
  Age: 63 Year
  Sex: Female

DRUGS (2)
  1. KORLYM [Suspect]
     Indication: CUSHING^S SYNDROME
     Route: 048
     Dates: start: 20130815
  2. KETOCONAZOLE [Concomitant]

REACTIONS (5)
  - Nerve compression [None]
  - Fatigue [None]
  - Lipohypertrophy [None]
  - Hyperglycaemia [None]
  - Weight increased [None]
